FAERS Safety Report 24728583 (Version 2)
Quarter: 2025Q1

REPORT INFORMATION
  Report Type: Spontaneous
  Country: CO (occurrence: CO)
  Receive Date: 20241212
  Receipt Date: 20250113
  Transmission Date: 20250409
  Serious: Yes (Hospitalization, Other)
  Sender: APELLIS PHARMACEUTICALS
  Company Number: CO-BIOVITRUM-2024-CO-015316

PATIENT
  Weight: 68 kg

DRUGS (1)
  1. PEGCETACOPLAN [Suspect]
     Active Substance: PEGCETACOPLAN
     Indication: Paroxysmal nocturnal haemoglobinuria
     Dosage: 1080MG/20 ML WITH A FREQUENCY OF 1AMPOULE OF 54 MG/ML, 2 TIMES PER WEEK,
     Route: 058
     Dates: start: 20230815, end: 20241126

REACTIONS (1)
  - Haemolysis [Not Recovered/Not Resolved]

NARRATIVE: CASE EVENT DATE: 20241128
